FAERS Safety Report 9731907 (Version 1)
Quarter: 2013Q4

REPORT INFORMATION
  Report Type: Spontaneous
  Country: US (occurrence: US)
  Receive Date: 20131205
  Receipt Date: 20131205
  Transmission Date: 20140711
  Serious: Yes (Hospitalization)
  Sender: FDA-Public Use
  Company Number: PHHY2013US135325

PATIENT
  Age: 68 Year
  Sex: Male

DRUGS (6)
  1. INFLUENZA VIRUS VACC SEASONAL INN [Suspect]
     Indication: IMMUNISATION
     Dosage: 1 DF
     Dates: start: 20120101
  2. CICLOSPORIN [Suspect]
     Dosage: UNK UKN, UNK
  3. PNEUMOVAX 23 [Suspect]
     Indication: IMMUNISATION
     Dosage: UNK
     Route: 030
     Dates: start: 20110627
  4. POLIOVIRUS TYPE 1 ANTIGEN (FORMALDEHYDE INACTIVATED)\POLIOVIRUS TYPE 2 ANTIGEN (FORMALDEHYDE INACTIVATED)\POLIOVIRUS TYPE 3 ANTIGEN (FORMALDEHYDE INACTIVATED)\POLIOVIRUS VACCINE, INACTIVATED [Suspect]
     Indication: IMMUNISATION
     Dates: start: 20120101
  5. HAEMOPHILUS INFLUENZAE TYPE B [Suspect]
     Indication: IMMUNISATION
     Dates: start: 20120101
  6. DIPHTHERIA AND TETANUS TOXOIDS AND PERTUSSIS [Suspect]
     Indication: IMMUNISATION
     Dates: start: 20120101

REACTIONS (4)
  - Glomerulonephritis membranoproliferative [Not Recovered/Not Resolved]
  - Nephrotic syndrome [Not Recovered/Not Resolved]
  - Renal failure [Not Recovered/Not Resolved]
  - Toxicity to various agents [Not Recovered/Not Resolved]
